APPROVED DRUG PRODUCT: METOCLOPRAMIDE HYDROCHLORIDE
Active Ingredient: METOCLOPRAMIDE HYDROCHLORIDE
Strength: EQ 10MG BASE
Dosage Form/Route: TABLET;ORAL
Application: A071250 | Product #001
Applicant: IMPAX LABORATORIES INC
Approved: Feb 3, 1988 | RLD: No | RS: No | Type: DISCN